FAERS Safety Report 17517409 (Version 1)
Quarter: 2020Q1

REPORT INFORMATION
  Report Type: Spontaneous
  Country: US (occurrence: US)
  Receive Date: 20200309
  Receipt Date: 20200309
  Transmission Date: 20200409
  Serious: No
  Sender: FDA-Public Use
  Company Number: None

PATIENT
  Age: 15 Year
  Sex: Female
  Weight: 75.15 kg

DRUGS (3)
  1. SINGULAIR [Suspect]
     Active Substance: MONTELUKAST SODIUM
     Indication: ASTHMA
     Dosage: ?          QUANTITY:1 TABLET(S);?
     Route: 048
     Dates: start: 20070615, end: 20190220
  2. ZIPRASIDONE. [Concomitant]
     Active Substance: ZIPRASIDONE
  3. BUSPIRONE [Concomitant]
     Active Substance: BUSPIRONE HYDROCHLORIDE

REACTIONS (18)
  - Anxiety [None]
  - Depression [None]
  - Hallucination [None]
  - Anger [None]
  - Epistaxis [None]
  - Irritability [None]
  - Nausea [None]
  - Nightmare [None]
  - Movement disorder [None]
  - Seizure [None]
  - Syncope [None]
  - Vomiting [None]
  - Educational problem [None]
  - Affective disorder [None]
  - Disturbance in attention [None]
  - Sleep disorder [None]
  - Tic [None]
  - Suicidal ideation [None]

NARRATIVE: CASE EVENT DATE: 20190220
